FAERS Safety Report 5252611-1 (Version None)
Quarter: 2007Q1

REPORT INFORMATION
  Report Type: 
  Country: None (occurrence: None)
  Receive Date: 20070227
  Receipt Date: 20070227
  Transmission Date: 20070707
  Serious: Yes (Hospitalization, Other)
  Sender: FDA-Public Use
  Company Number: None

PATIENT
  Age: 31 Year
  Sex: Female

DRUGS (2)
  1. ARAVA [Suspect]
     Indication: RHEUMATOID ARTHRITIS
     Dosage: DAILY  PO   (DURATION: HOME MED-APPROX 1-2WEKS-)
     Route: 048
  2. PREDNISONE [Concomitant]

REACTIONS (1)
  - HYPERTENSIVE CRISIS [None]
